FAERS Safety Report 16223737 (Version 1)
Quarter: 2019Q2

REPORT INFORMATION
  Report Type: Spontaneous
  Country: US (occurrence: US)
  Receive Date: 20190318
  Receipt Date: 20190318
  Transmission Date: 20190711
  Serious: No
  Sender: FDA-Public Use
  Company Number: None

PATIENT
  Sex: Male

DRUGS (1)
  1. ZYTIGA [Suspect]
     Active Substance: ABIRATERONE ACETATE
     Indication: NEOPLASM PROSTATE
     Route: 048

REACTIONS (7)
  - Mood swings [None]
  - Balance disorder [None]
  - Arthralgia [None]
  - Nausea [None]
  - Amnesia [None]
  - Hot flush [None]
  - Emotional disorder [None]
